FAERS Safety Report 8748151 (Version 2)
Quarter: 2012Q4

REPORT INFORMATION
  Report Type: 
  Country: US (occurrence: US)
  Receive Date: 20120827
  Receipt Date: 20120831
  Transmission Date: 20130627
  Serious: Yes (Other)
  Sender: FDA-Public Use
  Company Number: CHPA2012US018409

PATIENT
  Sex: Female

DRUGS (3)
  1. EXCEDRIN EXTRA STRENGTH [Suspect]
     Indication: MIGRAINE
     Dosage: 2 pills maybe twice a week
     Route: 048
  2. AMBIEN CR [Concomitant]
     Indication: INSOMNIA
     Route: 048
  3. VICODIN [Concomitant]
     Dosage: UNK
     Dates: start: 2005

REACTIONS (11)
  - Fibromyalgia [Not Recovered/Not Resolved]
  - Brachial plexopathy [Not Recovered/Not Resolved]
  - Hypoaesthesia [Not Recovered/Not Resolved]
  - Injury [Unknown]
  - Migraine [Unknown]
  - Off label use [Unknown]
  - Therapeutic response unexpected [Unknown]
  - Overdose [Unknown]
  - Incorrect dose administered [Unknown]
  - Accident at work [None]
  - Sleep disorder [None]
